FAERS Safety Report 9253859 (Version 1)
Quarter: 2013Q2

REPORT INFORMATION
  Report Type: Spontaneous
  Country: US (occurrence: None)
  Receive Date: 20130419
  Receipt Date: 20130419
  Transmission Date: 20140414
  Serious: Yes (Hospitalization)
  Sender: FDA-Public Use
  Company Number: 2013AP004526

PATIENT
  Age: 81 Year
  Sex: Male

DRUGS (8)
  1. GEMFIBROZIL [Suspect]
  2. SIMVASTATIN [Suspect]
  3. ASPIRIN [Concomitant]
  4. CLOPIDOGREL [Concomitant]
  5. ISOSORBIDE DINITRATE [Concomitant]
  6. FUROSEMIDE [Concomitant]
  7. METOPROLOL TARTRATE [Concomitant]
  8. OMEPRAZOLE [Concomitant]

REACTIONS (5)
  - Rhabdomyolysis [None]
  - Renal failure acute [None]
  - Haemodialysis [None]
  - Acute coronary syndrome [None]
  - Acute myocardial infarction [None]
